FAERS Safety Report 8954484 (Version 2)
Quarter: 2012Q4

REPORT INFORMATION
  Report Type: 
  Country: BR (occurrence: BR)
  Receive Date: 20121210
  Receipt Date: 20121212
  Transmission Date: 20130627
  Serious: Yes (Other)
  Sender: FDA-Public Use
  Company Number: PHHY2012BR112372

PATIENT
  Sex: Male
  Weight: 72.6 kg

DRUGS (10)
  1. RITALIN LA [Suspect]
     Indication: ATTENTION DEFICIT/HYPERACTIVITY DISORDER
     Dosage: 1 DF, daily
     Route: 048
     Dates: start: 201208
  2. RITALIN [Suspect]
     Indication: ATTENTION DEFICIT/HYPERACTIVITY DISORDER
     Dosage: 2 DF, daily
     Route: 048
     Dates: start: 201207
  3. EUTHYROX [Concomitant]
     Indication: THYROID FUNCTION TEST ABNORMAL
     Dosage: 25 ug, UNK
  4. EUTHYROX [Concomitant]
     Dosage: 50 ug, UNK
  5. EUTHYROX [Concomitant]
     Dosage: 75 ug, UNK
  6. MULTIVITAMINS [Concomitant]
     Dosage: 50 ug, daily
     Route: 048
  7. SELENIUM [Concomitant]
     Indication: GENERAL PHYSICAL HEALTH DETERIORATION
     Dosage: 1 DF, daily
     Route: 048
  8. CHROMIUM PICOLINATE [Concomitant]
     Indication: GENERAL PHYSICAL HEALTH DETERIORATION
     Dosage: 1 DF, daily
     Route: 048
  9. POLIVITAMINICO [Concomitant]
     Dosage: 1 DF, daily
     Route: 048
  10. TESTOSTERONE [Concomitant]
     Indication: HORMONE REPLACEMENT THERAPY
     Dosage: 1 DF, UNK

REACTIONS (4)
  - Hypothyroidism [Not Recovered/Not Resolved]
  - Depression [Not Recovered/Not Resolved]
  - Memory impairment [Not Recovered/Not Resolved]
  - Disturbance in attention [Not Recovered/Not Resolved]
